FAERS Safety Report 5739214-7 (Version None)
Quarter: 2008Q2

REPORT INFORMATION
  Report Type: 
  Country: None (occurrence: None)
  Receive Date: 20080515
  Receipt Date: 20080508
  Transmission Date: 20081010
  Serious: Yes (Other)
  Sender: FDA-Public Use
  Company Number: PHHY2008AU07440

PATIENT
  Age: 55 Year
  Sex: Female

DRUGS (3)
  1. CAFERGOT [Suspect]
     Indication: MIGRAINE
     Dosage: UNK, UNK
     Dates: start: 20080313, end: 20080416
  2. THYROXIN [Concomitant]
     Indication: THYROID DISORDER
     Dates: start: 20080201
  3. CENTRUM [Concomitant]

REACTIONS (10)
  - BACK PAIN [None]
  - BONE PAIN [None]
  - BREAST PAIN [None]
  - CARDIAC DISORDER [None]
  - CHEST PAIN [None]
  - GENERAL PHYSICAL HEALTH DETERIORATION [None]
  - PAIN IN EXTREMITY [None]
  - RASH MACULAR [None]
  - SENSORY DISTURBANCE [None]
  - SKIN DISCOLOURATION [None]
